FAERS Safety Report 8295176-2 (Version None)
Quarter: 2012Q2

REPORT INFORMATION
  Report Type: 
  Country: None (occurrence: None)
  Receive Date: 20120418
  Receipt Date: 20120404
  Transmission Date: 20120825
  Serious: Yes (Hospitalization, Other)
  Sender: FDA-Public Use
  Company Number: US-ROCHE-1056180

PATIENT
  Sex: Female
  Weight: 59.928 kg

DRUGS (7)
  1. LOVENOX [Concomitant]
     Route: 058
  2. CARBOPLATIN [Concomitant]
     Indication: BREAST CANCER METASTATIC
     Route: 042
  3. XELODA [Suspect]
     Indication: BREAST CANCER METASTATIC
     Route: 048
     Dates: start: 20120222
  4. XELODA [Suspect]
     Indication: METASTASES TO LIVER
  5. CARBOPLATIN [Concomitant]
     Indication: METASTASES TO LIVER
  6. ACIDOPHILUS [Concomitant]
     Indication: PROPHYLAXIS
  7. PREVACID [Concomitant]
     Route: 048
     Dates: end: 20120301

REACTIONS (8)
  - PAIN IN EXTREMITY [None]
  - HEART RATE INCREASED [None]
  - ERYTHEMA [None]
  - BIOPSY LIVER [None]
  - INGROWING NAIL [None]
  - FULL BLOOD COUNT DECREASED [None]
  - FATIGUE [None]
  - PHARYNGEAL ERYTHEMA [None]
